FAERS Safety Report 8425676-3 (Version None)
Quarter: 2012Q2

REPORT INFORMATION
  Report Type: 
  Country: None (occurrence: None)
  Receive Date: 20120611
  Receipt Date: 20120606
  Transmission Date: 20120825
  Serious: Yes (Death, Hospitalization, Other)
  Sender: FDA-Public Use
  Company Number: PHHY2012CA005552

PATIENT
  Sex: Male

DRUGS (3)
  1. MORPHINE [Concomitant]
     Indication: PAIN
     Dosage: 5 - 10 MG, PER NIGHT
  2. SANDOSTATIN [Suspect]
     Indication: NEUROENDOCRINE TUMOUR
     Dosage: 100 UG, ONCE
     Route: 058
     Dates: start: 20120113
  3. SANDOSTATIN LAR [Suspect]
     Indication: NEUROENDOCRINE CARCINOMA
     Dosage: 30 MG, QMO
     Route: 030
     Dates: start: 20120124, end: 20120516

REACTIONS (13)
  - VOMITING [None]
  - LETHARGY [None]
  - GAIT DISTURBANCE [None]
  - THIRST DECREASED [None]
  - BLOOD GLUCOSE FLUCTUATION [None]
  - FLATULENCE [None]
  - HYPERSOMNIA [None]
  - DECREASED APPETITE [None]
  - ASTHENIA [None]
  - DEATH [None]
  - BOWEL MOVEMENT IRREGULARITY [None]
  - DIARRHOEA [None]
  - PAIN [None]
